FAERS Safety Report 21673411 (Version 1)
Quarter: 2022Q4

REPORT INFORMATION
  Report Type: Spontaneous
  Country: JP (occurrence: None)
  Receive Date: 20221202
  Receipt Date: 20221202
  Transmission Date: 20230113
  Serious: Yes (Death, Other)
  Sender: FDA-Public Use
  Company Number: 2022A394093

PATIENT
  Age: 75 Year
  Sex: Female
  Weight: 33 kg

DRUGS (9)
  1. TAGRISSO [Suspect]
     Active Substance: OSIMERTINIB
     Indication: Non-small cell lung cancer
     Route: 048
  2. TAGRISSO [Suspect]
     Active Substance: OSIMERTINIB
     Indication: Non-small cell lung cancer
     Route: 048
     Dates: start: 20220713, end: 20221114
  3. IRESSA [Suspect]
     Active Substance: GEFITINIB
     Indication: Lung adenocarcinoma
     Route: 048
  4. FENTANYL [Concomitant]
     Active Substance: FENTANYL
     Dosage: DOSE UNKNOWN
     Route: 062
     Dates: start: 20220704
  5. FENTANYL [Concomitant]
     Active Substance: FENTANYL
     Dosage: DOSE UNKNOWN
     Route: 062
  6. VEMLIDY [Concomitant]
     Active Substance: TENOFOVIR ALAFENAMIDE FUMARATE
     Dosage: DOSE UNKNOWN
     Route: 048
     Dates: end: 20221114
  7. AMBROXOL HYDROCHLORIDE OD [Concomitant]
     Dosage: DOSE UNKNOWN
     Route: 048
     Dates: start: 20220730, end: 20221114
  8. CARBOCYSTEINE [Concomitant]
     Active Substance: CARBOCYSTEINE
     Dosage: DOSE UNKNOWN
     Route: 048
     Dates: start: 20221008, end: 20221114
  9. DEXTROMETHORPHAN HYDROBROMIDE [Concomitant]
     Active Substance: DEXTROMETHORPHAN HYDROBROMIDE
     Dosage: DOSE UNKNOWN
     Route: 048
     Dates: start: 20220709, end: 20221114

REACTIONS (8)
  - Death [Fatal]
  - Cutaneous vasculitis [Not Recovered/Not Resolved]
  - Dermatitis acneiform [Not Recovered/Not Resolved]
  - Rash [Unknown]
  - Conjunctival hyperaemia [Unknown]
  - Decubitus ulcer [Unknown]
  - Dysphagia [Unknown]
  - Paronychia [Unknown]

NARRATIVE: CASE EVENT DATE: 20220101
